FAERS Safety Report 24104399 (Version 1)
Quarter: 2024Q3

REPORT INFORMATION
  Report Type: Report from Study
  Country: US (occurrence: US)
  Receive Date: 20240717
  Receipt Date: 20240717
  Transmission Date: 20241016
  Serious: Yes (Death)
  Sender: BAYER
  Company Number: US-BAYER-2024A101693

PATIENT
  Age: 68 Year
  Sex: Female
  Weight: 62.585 kg

DRUGS (18)
  1. ADEMPAS [Suspect]
     Active Substance: RIOCIGUAT
     Indication: Pulmonary arterial hypertension
     Dosage: UNK
     Dates: start: 20211018
  2. ADEMPAS [Suspect]
     Active Substance: RIOCIGUAT
     Indication: Pulmonary arterial hypertension
     Dosage: 2.5 MG, TID
     Route: 048
  3. VITAMIN C [Concomitant]
     Active Substance: ASCORBIC ACID
  4. DIETARY SUPPLEMENT [Concomitant]
     Active Substance: DIETARY SUPPLEMENT
  5. KEYTRUDA [Concomitant]
     Active Substance: PEMBROLIZUMAB
  6. POTASSIUM CHLORIDE [Concomitant]
     Active Substance: POTASSIUM CHLORIDE
  7. OXYCODONE HYDROCHLORIDE [Concomitant]
     Active Substance: OXYCODONE HYDROCHLORIDE
  8. SENNA S [Concomitant]
     Active Substance: DOCUSATE SODIUM\SENNA LEAF
  9. PANTOPRAZOLE SODIUM [Concomitant]
     Active Substance: PANTOPRAZOLE SODIUM
  10. SERTRALINE HYDROCHLORIDE [Concomitant]
     Active Substance: SERTRALINE HYDROCHLORIDE
  11. ASPIRIN [Concomitant]
     Active Substance: ASPIRIN
  12. CALCIUM\CHOLECALCIFEROL [Concomitant]
     Active Substance: CALCIUM\CHOLECALCIFEROL
  13. OPSUMIT [Concomitant]
     Active Substance: MACITENTAN
  14. OXYGEN [Concomitant]
     Active Substance: OXYGEN
  15. ATORVASTATIN CALCIUM [Concomitant]
     Active Substance: ATORVASTATIN CALCIUM
  16. PREDNISONE [Concomitant]
     Active Substance: PREDNISONE
  17. FUROSEMIDE [Concomitant]
     Active Substance: FUROSEMIDE
  18. TYVASO [Concomitant]
     Active Substance: TREPROSTINIL

REACTIONS (1)
  - Death [Fatal]

NARRATIVE: CASE EVENT DATE: 20240527
